FAERS Safety Report 7282494-X (Version None)
Quarter: 2011Q1

REPORT INFORMATION
  Report Type: 
  Country: None (occurrence: None)
  Receive Date: 20110209
  Receipt Date: 20110203
  Transmission Date: 20110831
  Serious: Yes (Other)
  Sender: FDA-Public Use
  Company Number: US-TYCO HEALTHCARE/MALLINCKRODT-T201001951

PATIENT
  Sex: Female

DRUGS (3)
  1. OPTIMARK [Suspect]
     Dosage: UNK UNK, SINGLE
     Dates: start: 20070801, end: 20070801
  2. OMNISCAN [Suspect]
     Dosage: UNK UNK, SINGLE
     Dates: start: 20041221, end: 20041221
  3. OMNISCAN [Suspect]
     Dosage: UNK UNK, SINGLE
     Dates: start: 20050214, end: 20050214

REACTIONS (1)
  - NEPHROGENIC SYSTEMIC FIBROSIS [None]
